FAERS Safety Report 7788939-0 (Version None)
Quarter: 2011Q3

REPORT INFORMATION
  Report Type: 
  Country: None (occurrence: None)
  Receive Date: 20110930
  Receipt Date: 20110915
  Transmission Date: 20111222
  Serious: Yes (Hospitalization, Other)
  Sender: FDA-Public Use
  Company Number: PHHY2011JP85918

PATIENT
  Sex: Female

DRUGS (24)
  1. TEICOPLANIN [Suspect]
     Dosage: 400 MG, UNK
     Dates: start: 20110628
  2. GLOVENIN [Concomitant]
     Indication: PROPHYLAXIS
     Dosage: 5 G, UNK
     Dates: start: 20110127, end: 20110630
  3. MINOPHAGEN C [Concomitant]
     Dosage: 100 ML, UNK
     Dates: start: 20101022
  4. CEFOPERAZONE SODIUM [Concomitant]
     Indication: PROPHYLAXIS
     Dosage: 500 MG, UNK
     Dates: start: 20110628
  5. ZOSYN [Concomitant]
     Indication: PROPHYLAXIS
     Dosage: 13.5 G, UNK
     Dates: start: 20110427, end: 20110501
  6. EXJADE [Suspect]
     Dosage: 500 MG, DAILY
     Route: 048
     Dates: start: 20110611, end: 20110621
  7. GRAN [Concomitant]
     Indication: ACUTE MYELOID LEUKAEMIA
     Dosage: 375 UG, UNK
     Dates: start: 20110128, end: 20110208
  8. ACYCLOVIR [Concomitant]
     Dosage: 340 MG, UNK
     Dates: start: 20110614, end: 20110623
  9. SANDIMMUNE [Suspect]
     Indication: STEM CELL TRANSPLANT
     Dosage: 60 MG, DAILY
     Route: 041
     Dates: start: 20110126, end: 20110530
  10. FUNGUARD [Suspect]
     Indication: PROPHYLAXIS
     Dosage: 150 MG, UNK
     Dates: start: 20110203, end: 20110327
  11. FUNGUARD [Suspect]
     Dosage: 100 MG, DAILY
     Dates: start: 20110615
  12. ZOVIRAX [Concomitant]
     Indication: PROPHYLAXIS
     Dosage: 1000 MG, UNK
     Route: 048
     Dates: start: 20110119, end: 20110603
  13. PENTAMIDINE ISETHIONATE [Concomitant]
     Indication: PROPHYLAXIS
     Dosage: 300 MG, UNK
     Dates: start: 20110301
  14. ACYCLOVIR [Concomitant]
     Indication: PROPHYLAXIS
     Dosage: 400 MG, UNK
     Dates: start: 20110309, end: 20110326
  15. EXJADE [Suspect]
     Indication: IRON OVERLOAD
     Dosage: 1125 MG, DALIY
     Route: 048
     Dates: end: 20110202
  16. TEICOPLANIN [Suspect]
     Indication: PROPHYLAXIS
     Dosage: 200 MG, UNK
     Dates: start: 20110121, end: 20110201
  17. MYLOTARG [Suspect]
     Indication: ACUTE MYELOID LEUKAEMIA
     Dosage: 3.7 MG, UNK
     Dates: start: 20110113, end: 20110113
  18. DORIPENEM MONOHYDRATE [Concomitant]
     Dosage: 0.5 G, UNK
     Dates: end: 20110628
  19. LASIX [Concomitant]
     Indication: PROPHYLAXIS
     Dosage: 260 MG, UNK
     Dates: start: 20110122, end: 20110629
  20. DORIPENEM MONOHYDRATE [Concomitant]
     Indication: PROPHYLAXIS
     Dosage: 1.5 G, UNK
     Dates: start: 20110202
  21. DORIPENEM MONOHYDRATE [Concomitant]
     Dosage: 1000 MG, UNK
  22. SANDIMMUNE [Suspect]
     Dosage: 24 MG, UNK
     Route: 041
     Dates: start: 20110615
  23. CEFEPIME HYDROCHLORIDE [Concomitant]
     Indication: PROPHYLAXIS
     Dosage: 4 G, UNK
     Dates: start: 20110129, end: 20110202
  24. VFEND [Suspect]
     Indication: PROPHYLAXIS
     Dosage: 320 MG, UNK
     Route: 048
     Dates: start: 20110130, end: 20110203

REACTIONS (21)
  - VENOOCCLUSIVE DISEASE [None]
  - ABDOMINAL PAIN [None]
  - ASCITES [None]
  - UVULITIS [None]
  - THROMBOTIC MICROANGIOPATHY [None]
  - CYTOMEGALOVIRUS INFECTION [None]
  - CHEILITIS [None]
  - WEIGHT INCREASED [None]
  - GASTROINTESTINAL HAEMORRHAGE [None]
  - RENAL FAILURE [None]
  - PNEUMONIA [None]
  - FULL BLOOD COUNT DECREASED [None]
  - HEPATOMEGALY [None]
  - ENTEROCOLITIS [None]
  - CHRONIC GRAFT VERSUS HOST DISEASE [None]
  - STAPHYLOMA [None]
  - HYPOALBUMINAEMIA [None]
  - OEDEMA [None]
  - STOMATITIS [None]
  - PAIN [None]
  - HYPERGLYCAEMIA [None]
